FAERS Safety Report 25453077 (Version 2)
Quarter: 2025Q4

REPORT INFORMATION
  Report Type: Report from Study
  Country: US (occurrence: US)
  Receive Date: 20250618
  Receipt Date: 20251028
  Transmission Date: 20260117
  Serious: No
  Sender: MALLINCKRODT
  Company Number: US-MALLINCKRODT-MNK202500605

PATIENT
  Age: 54 Year
  Sex: Female
  Weight: 171 kg

DRUGS (2)
  1. CORTICOTROPIN [Suspect]
     Active Substance: CORTICOTROPIN
     Indication: Systemic lupus erythematosus
     Route: 058
     Dates: start: 202410, end: 2024
  2. CORTICOTROPIN [Suspect]
     Active Substance: CORTICOTROPIN
     Dosage: 80 UNITS
     Dates: start: 2024

REACTIONS (7)
  - Pain in extremity [Not Recovered/Not Resolved]
  - Symptom recurrence [Unknown]
  - Dyspnoea [Unknown]
  - Muscle spasms [Unknown]
  - Headache [Unknown]
  - Malaise [Unknown]
  - Product dose omission issue [Unknown]
